FAERS Safety Report 14457032 (Version 1)
Quarter: 2018Q1

REPORT INFORMATION
  Report Type: Spontaneous
  Country: US (occurrence: US)
  Receive Date: 20180127
  Receipt Date: 20180127
  Transmission Date: 20180509
  Serious: No
  Sender: FDA-Public Use
  Company Number: None

PATIENT
  Age: 55 Year
  Sex: Female

DRUGS (1)
  1. HUMIRA [Suspect]
     Active Substance: ADALIMUMAB
     Indication: RHEUMATOID ARTHRITIS
     Route: 058
     Dates: start: 20170922

REACTIONS (4)
  - Arthralgia [None]
  - Drug ineffective [None]
  - Rheumatoid arthritis [None]
  - Arthritis [None]

NARRATIVE: CASE EVENT DATE: 20180124
